FAERS Safety Report 9313456 (Version 1)
Quarter: 2013Q2

REPORT INFORMATION
  Report Type: Spontaneous
  Country: DE (occurrence: DE)
  Receive Date: 20130528
  Receipt Date: 20130528
  Transmission Date: 20140414
  Serious: Yes (Congenital Anomaly, Other)
  Sender: FDA-Public Use
  Company Number: DE-ASTRAZENECA-2013SE35133

PATIENT
  Sex: Male
  Weight: 4.1 kg

DRUGS (8)
  1. SEROQUEL PROLONG [Suspect]
     Indication: BIPOLAR DISORDER
     Route: 064
     Dates: start: 2009
  2. SEROQUEL PROLONG [Suspect]
     Indication: BIPOLAR DISORDER
     Route: 064
     Dates: start: 20111102
  3. VENLAFAXINE [Suspect]
     Indication: BIPOLAR DISORDER
     Route: 064
     Dates: start: 2009
  4. VENLAFAXINE [Suspect]
     Indication: BIPOLAR DISORDER
     Route: 064
     Dates: start: 20111102
  5. QUILONORM RETARD [Suspect]
     Indication: BIPOLAR DISORDER
     Route: 064
  6. QUILONORM RETARD [Suspect]
     Indication: BIPOLAR DISORDER
     Route: 064
  7. QUILONORM RETARD [Suspect]
     Indication: BIPOLAR DISORDER
     Route: 064
     Dates: start: 20111102
  8. FOLIC ACID [Concomitant]
     Indication: PROPHYLAXIS OF NEURAL TUBE DEFECT
     Route: 064
     Dates: start: 20111102, end: 20120727

REACTIONS (6)
  - Congenital hydronephrosis [Unknown]
  - Persistent foetal circulation [Unknown]
  - Large for dates baby [Unknown]
  - Neonatal respiratory distress syndrome [Recovered/Resolved]
  - Bundle branch block right [Unknown]
  - Drug withdrawal syndrome neonatal [Recovered/Resolved]
